FAERS Safety Report 18466944 (Version 20)
Quarter: 2022Q4

REPORT INFORMATION
  Report Type: Report from Study
  Country: JP (occurrence: JP)
  Receive Date: 20201105
  Receipt Date: 20221207
  Transmission Date: 20230112
  Serious: Yes (Death, Hospitalization, Other)
  Sender: FDA-Public Use
  Company Number: JP-BRISTOL-MYERS SQUIBB COMPANY-BMS-2020-028939

PATIENT
  Age: 83 Year
  Sex: Male
  Weight: 48.5 kg

DRUGS (37)
  1. YERVOY [Suspect]
     Active Substance: IPILIMUMAB
     Indication: Metastatic renal cell carcinoma
     Dosage: 1 MG/KG
     Route: 041
     Dates: start: 20200117, end: 20200117
  2. YERVOY [Suspect]
     Active Substance: IPILIMUMAB
     Dosage: 1 MG/KG
     Route: 041
     Dates: start: 20200228, end: 20200228
  3. YERVOY [Suspect]
     Active Substance: IPILIMUMAB
     Dosage: 1 MG/KG
     Route: 041
     Dates: start: 20200327, end: 20200417
  4. YERVOY [Suspect]
     Active Substance: IPILIMUMAB
     Dosage: ONE TIME DOSE
     Route: 041
     Dates: start: 20200417, end: 20200417
  5. OPDIVO [Suspect]
     Active Substance: NIVOLUMAB
     Indication: Metastatic renal cell carcinoma
     Dosage: ONE TIME DOSE
     Route: 041
     Dates: start: 20200117, end: 20200117
  6. OPDIVO [Suspect]
     Active Substance: NIVOLUMAB
     Dosage: ONE TIME DOSE
     Route: 041
     Dates: start: 20200228, end: 20200228
  7. OPDIVO [Suspect]
     Active Substance: NIVOLUMAB
     Dosage: ONE TIME DOSE
     Route: 041
     Dates: start: 20200327, end: 20200327
  8. OPDIVO [Suspect]
     Active Substance: NIVOLUMAB
     Dosage: ONE TIME DOSE
     Route: 041
     Dates: start: 20200417, end: 20200417
  9. OPDIVO [Suspect]
     Active Substance: NIVOLUMAB
     Dosage: ONE TIME DOSE
     Route: 041
     Dates: start: 20200508, end: 20200508
  10. OPDIVO [Suspect]
     Active Substance: NIVOLUMAB
     Dosage: ONE TIME DOSE
     Route: 041
     Dates: start: 20200522, end: 20200522
  11. OPDIVO [Suspect]
     Active Substance: NIVOLUMAB
     Dosage: ONE TIME DOSE
     Route: 041
     Dates: start: 20200619, end: 20200619
  12. OPDIVO [Suspect]
     Active Substance: NIVOLUMAB
     Dosage: ONE TIME DOSE
     Route: 041
     Dates: start: 20200703, end: 20200703
  13. OPDIVO [Suspect]
     Active Substance: NIVOLUMAB
     Dosage: ONE TIME DOSE
     Route: 041
     Dates: start: 20200717, end: 20200717
  14. OPDIVO [Suspect]
     Active Substance: NIVOLUMAB
     Dosage: ONE TIME DOSE
     Route: 041
     Dates: start: 20200731, end: 20200731
  15. OPDIVO [Suspect]
     Active Substance: NIVOLUMAB
     Dosage: ONE TIME DOSE
     Route: 041
     Dates: start: 20200814, end: 20200814
  16. OPDIVO [Suspect]
     Active Substance: NIVOLUMAB
     Dosage: ONE TIME DOSE
     Route: 041
     Dates: start: 20200828, end: 20200828
  17. OPDIVO [Suspect]
     Active Substance: NIVOLUMAB
     Dosage: ONE TIME DOSE
     Route: 041
     Dates: start: 20200911, end: 20200911
  18. OPDIVO [Suspect]
     Active Substance: NIVOLUMAB
     Dosage: ONE TIME DOSE
     Route: 041
     Dates: start: 20200925, end: 20200925
  19. OPDIVO [Suspect]
     Active Substance: NIVOLUMAB
     Dosage: ONE TIME DOSE
     Route: 041
     Dates: start: 20201009, end: 20201009
  20. OPDIVO [Suspect]
     Active Substance: NIVOLUMAB
     Dosage: ONE TIME DOSE
     Route: 041
     Dates: start: 20201106, end: 20201106
  21. OPDIVO [Suspect]
     Active Substance: NIVOLUMAB
     Dosage: ONE TIME DOSE
     Route: 041
     Dates: start: 20201204, end: 20201204
  22. OPDIVO [Suspect]
     Active Substance: NIVOLUMAB
     Dosage: ONE TIME DOSE
     Route: 041
     Dates: start: 20210108, end: 20210108
  23. OPDIVO [Suspect]
     Active Substance: NIVOLUMAB
     Dosage: ONE TIME DOSE
     Route: 041
     Dates: start: 20210205, end: 20210205
  24. OPDIVO [Suspect]
     Active Substance: NIVOLUMAB
     Dosage: ONE TIME DOSE
     Route: 041
     Dates: start: 20210305, end: 20210305
  25. OPDIVO [Suspect]
     Active Substance: NIVOLUMAB
     Dosage: ONE TIME DOSE
     Route: 041
     Dates: start: 20210402, end: 20210402
  26. OPDIVO [Suspect]
     Active Substance: NIVOLUMAB
     Dosage: ONE TIME DOSE
     Route: 041
     Dates: start: 20210430, end: 20210430
  27. OPDIVO [Suspect]
     Active Substance: NIVOLUMAB
     Dosage: ONE TIME DOSE
     Route: 041
     Dates: start: 20210528, end: 20210528
  28. OPDIVO [Suspect]
     Active Substance: NIVOLUMAB
     Dosage: ONE TIME DOSE
     Route: 041
     Dates: start: 20210625, end: 20210625
  29. OPDIVO [Suspect]
     Active Substance: NIVOLUMAB
     Dosage: ONE TIME DOSE
     Route: 041
     Dates: start: 20210730, end: 20210730
  30. OPDIVO [Suspect]
     Active Substance: NIVOLUMAB
     Dosage: ONE TIME DOSE
     Route: 041
     Dates: start: 20210827, end: 20210827
  31. OPDIVO [Suspect]
     Active Substance: NIVOLUMAB
     Dosage: ONE TIME DOSE
     Route: 041
     Dates: start: 20210924, end: 20210924
  32. OPDIVO [Suspect]
     Active Substance: NIVOLUMAB
     Dosage: ONE TIME DOSE
     Route: 041
     Dates: start: 20211022, end: 20211022
  33. OPDIVO [Suspect]
     Active Substance: NIVOLUMAB
     Dosage: ONE TIME DOSE
     Route: 041
     Dates: start: 20211119, end: 20211119
  34. OPDIVO [Suspect]
     Active Substance: NIVOLUMAB
     Dosage: ONE TIME DOSE
     Route: 041
     Dates: start: 20211217, end: 20211217
  35. OPDIVO [Suspect]
     Active Substance: NIVOLUMAB
     Dosage: ONE TIME DOSE
     Route: 041
     Dates: start: 20220114, end: 20220114
  36. OPDIVO [Suspect]
     Active Substance: NIVOLUMAB
     Dosage: ONE TIME DOSE
     Route: 041
     Dates: start: 20220218, end: 20220218
  37. OPDIVO [Suspect]
     Active Substance: NIVOLUMAB
     Dosage: ONE TIME DOSE
     Route: 041
     Dates: start: 20200605, end: 20200605

REACTIONS (6)
  - Pleural effusion [Recovered/Resolved]
  - Eczema asteatotic [Recovering/Resolving]
  - Immune-mediated hypothyroidism [Recovering/Resolving]
  - Epilepsy [Recovered/Resolved]
  - Malignant neoplasm progression [Recovering/Resolving]
  - Cardiac failure [Fatal]

NARRATIVE: CASE EVENT DATE: 20200131
